FAERS Safety Report 10013452 (Version 3)
Quarter: 2014Q2

REPORT INFORMATION
  Report Type: Spontaneous
  Country: JP (occurrence: JP)
  Receive Date: 20140314
  Receipt Date: 20140403
  Transmission Date: 20141212
  Serious: Yes (Hospitalization, Other)
  Sender: FDA-Public Use
  Company Number: JP-B.I. PHARMACEUTICALS,INC./RIDGEFIELD-2014-BI-11375YA

PATIENT
  Age: 69 Year
  Sex: Male
  Weight: 60 kg

DRUGS (4)
  1. HARNAL D [Suspect]
     Indication: HYPERTONIC BLADDER
     Dosage: 5 MG
     Route: 048
     Dates: start: 20130628, end: 20140130
  2. URIEF [Concomitant]
     Route: 065
     Dates: start: 20110617
  3. DEPAS [Concomitant]
     Route: 065
     Dates: start: 20130123, end: 20140130
  4. HALCION [Concomitant]
     Route: 065
     Dates: start: 20140123, end: 20140130

REACTIONS (2)
  - Urinary retention [Not Recovered/Not Resolved]
  - Postrenal failure [Not Recovered/Not Resolved]
